FAERS Safety Report 6945547-9 (Version None)
Quarter: 2010Q3

REPORT INFORMATION
  Report Type: 
  Country: None (occurrence: None)
  Receive Date: 20100827
  Receipt Date: 20100817
  Transmission Date: 20110219
  Serious: Yes (Hospitalization)
  Sender: FDA-Public Use
  Company Number: FR-CELGENEUS-056-C5013-10020969

PATIENT
  Sex: Male
  Weight: 80 kg

DRUGS (9)
  1. LENALIDOMIDE [Suspect]
     Indication: MULTIPLE MYELOMA
     Route: 048
     Dates: start: 20100120
  2. DEXAMETHASONE [Suspect]
     Indication: MULTIPLE MYELOMA
     Route: 065
     Dates: start: 20100120
  3. KARDEGIC [Concomitant]
     Indication: THROMBOSIS PROPHYLAXIS
     Route: 048
     Dates: start: 20100120, end: 20100210
  4. ATENOLOL [Concomitant]
     Route: 048
     Dates: start: 19830101
  5. CLASTOBAN [Concomitant]
     Indication: PROPHYLAXIS
     Route: 048
     Dates: start: 20100120
  6. LEVOTHYROXINE SODIUM [Concomitant]
     Indication: HYPOTHYROIDISM
     Route: 048
     Dates: start: 19990101
  7. LERCAN [Concomitant]
     Route: 048
     Dates: start: 19830101
  8. CRESTOR [Concomitant]
     Route: 048
     Dates: start: 19830101
  9. LOVENOX [Concomitant]
     Indication: THROMBOSIS PROPHYLAXIS
     Route: 058
     Dates: start: 20100211

REACTIONS (3)
  - GENERAL PHYSICAL HEALTH DETERIORATION [None]
  - INTESTINAL OBSTRUCTION [None]
  - URINARY RETENTION [None]
